FAERS Safety Report 8657667 (Version 5)
Quarter: 2012Q4

REPORT INFORMATION
  Report Type: 
  Country: JP (occurrence: JP)
  Receive Date: 20120710
  Receipt Date: 20120919
  Transmission Date: 20130627
  Serious: Yes (Life-Threatening, Hospitalization)
  Sender: FDA-Public Use
  Company Number: JP-BRISTOL-MYERS SQUIBB COMPANY-16709412

PATIENT
  Age: 84 Year
  Sex: Female
  Weight: 36 kg

DRUGS (23)
  1. ORENCIA FOR INJ 250 MG/VIAL [Suspect]
     Indication: RHEUMATOID ARTHRITIS
     Dosage: 6May,20May,1Jul,28Jul,19Aug.16Sep,13Oct11
     Route: 041
     Dates: start: 20110422, end: 20120709
  2. BLOPRESS [Suspect]
     Indication: HYPERTENSION
     Dosage: tab
     Route: 048
     Dates: end: 20120709
  3. PROGRAF [Suspect]
     Indication: RHEUMATOID ARTHRITIS
     Dosage: Caps
     Route: 048
     Dates: start: 20090420, end: 20120606
  4. BUCILLAMINE [Concomitant]
  5. SALAZOSULFAPYRIDINE [Concomitant]
     Indication: RHEUMATOID ARTHRITIS
  6. ACTARIT [Concomitant]
     Indication: RHEUMATOID ARTHRITIS
  7. PREDONINE [Concomitant]
     Indication: RHEUMATOID ARTHRITIS
     Dosage: tab
     Route: 048
     Dates: end: 20110501
  8. PREDNISOLONE [Concomitant]
     Indication: RHEUMATOID ARTHRITIS
     Dosage: tab.1mg:unk-01May11
9mg:02May11-18May11
6mg:19May11-25May11
4mg:26May11-04Jul11
2mg:05Jul11-ongn
     Route: 048
  9. LOXONIN [Concomitant]
     Indication: RHEUMATOID ARTHRITIS
     Dosage: tab
  10. MOHRUS [Concomitant]
     Indication: RHEUMATOID ARTHRITIS
  11. CELECOXIB [Concomitant]
     Indication: RHEUMATOID ARTHRITIS
     Dosage: tab
  12. DEPAS [Concomitant]
     Dosage: tab
  13. BASEN [Concomitant]
     Dosage: tab
  14. EURODIN [Concomitant]
     Dosage: tab
  15. LASIX [Concomitant]
     Dosage: tab
  16. TAKEPRON [Concomitant]
     Dosage: tab
  17. MUCOSTA [Concomitant]
     Dosage: tab
  18. BAKTAR [Concomitant]
     Dosage: tab
  19. MAGLAX [Concomitant]
     Dosage: tab
  20. LIPITOR [Concomitant]
     Dosage: tab
  21. ASPIRIN [Concomitant]
     Dosage: tab
  22. BONALON [Concomitant]
     Dosage: tab
  23. LYRICA [Concomitant]
     Dosage: caps

REACTIONS (4)
  - Cardiac failure [Recovering/Resolving]
  - Altered state of consciousness [Recovering/Resolving]
  - Hyponatraemia [Recovering/Resolving]
  - Diarrhoea [Unknown]
